FAERS Safety Report 16687999 (Version 1)
Quarter: 2019Q3

REPORT INFORMATION
  Report Type: Spontaneous
  Country: DE (occurrence: DE)
  Receive Date: 20190809
  Receipt Date: 20190809
  Transmission Date: 20191004
  Serious: Yes (Disabling, Other)
  Sender: FDA-Public Use
  Company Number: DE-CURIUM PHARMACEUTICALS-201200519

PATIENT
  Age: 41 Year
  Sex: Female

DRUGS (1)
  1. ULTRA-TECHNEKOW FM [Suspect]
     Active Substance: TECHNETIUM TC-99M SODIUM PERTECHNETATE
     Indication: SCAN THYROID GLAND
     Route: 042
     Dates: start: 201101, end: 201101

REACTIONS (10)
  - Blindness transient [Recovered/Resolved]
  - Aphasia [Recovered/Resolved]
  - Sensory loss [Recovered/Resolved]
  - Fatigue [Not Recovered/Not Resolved]
  - Vision blurred [Recovered/Resolved]
  - Vomiting [Recovered/Resolved]
  - Injection site rash [Recovered/Resolved]
  - Nausea [Recovered/Resolved]
  - Blood urine present [Recovered/Resolved]
  - Malaise [Recovered/Resolved]

NARRATIVE: CASE EVENT DATE: 201101
